FAERS Safety Report 25483915 (Version 4)
Quarter: 2025Q3

REPORT INFORMATION
  Report Type: Spontaneous
  Country: US (occurrence: US)
  Receive Date: 20250626
  Receipt Date: 20250702
  Transmission Date: 20251020
  Serious: Yes (Life-Threatening, Other)
  Sender: PFIZER
  Company Number: US-MLMSERVICE-20250616-PI545907-00271-1

PATIENT
  Age: 54 Year
  Sex: Male

DRUGS (6)
  1. ADALIMUMAB [Suspect]
     Active Substance: ADALIMUMAB
     Indication: Anal fistula
     Dates: start: 2016, end: 2020
  2. ADALIMUMAB [Suspect]
     Active Substance: ADALIMUMAB
     Indication: Crohn^s disease
  3. PREDNISONE [Suspect]
     Active Substance: PREDNISONE
     Indication: Anal fistula
  4. PREDNISONE [Suspect]
     Active Substance: PREDNISONE
     Indication: Crohn^s disease
  5. AZATHIOPRINE [Suspect]
     Active Substance: AZATHIOPRINE
     Indication: Anal fistula
     Dates: end: 2020
  6. AZATHIOPRINE [Suspect]
     Active Substance: AZATHIOPRINE
     Indication: Crohn^s disease

REACTIONS (2)
  - Plasmablastic lymphoma [Recovered/Resolved]
  - Epstein-Barr virus associated lymphoma [Recovered/Resolved]

NARRATIVE: CASE EVENT DATE: 20210101
